FAERS Safety Report 18699119 (Version 5)
Quarter: 2021Q1

REPORT INFORMATION
  Report Type: Spontaneous
  Country: CA (occurrence: CA)
  Receive Date: 20210105
  Receipt Date: 20210314
  Transmission Date: 20210419
  Serious: No
  Sender: FDA-Public Use
  Company Number: CA-CELLTRION INC.-2020CA028453

PATIENT

DRUGS (7)
  1. INFLECTRA [Suspect]
     Active Substance: INFLIXIMAB-DYYB
     Dosage: 500 MG AT 0, 2, 6 WEEK, THEN EVERY 6 WEEKS
     Route: 042
     Dates: start: 20201008, end: 20201008
  2. CELEBREX [Concomitant]
     Active Substance: CELECOXIB
     Dosage: UNK
  3. INFLECTRA [Suspect]
     Active Substance: INFLIXIMAB-DYYB
     Dosage: 500 MG
     Route: 042
     Dates: start: 20201228
  4. INFLECTRA [Suspect]
     Active Substance: INFLIXIMAB-DYYB
     Dosage: 500 MG AT 0, 2, 6 WEEKS, THEN EVERY 6 WEEKS
     Route: 042
     Dates: start: 20210211
  5. INFLECTRA [Suspect]
     Active Substance: INFLIXIMAB-DYYB
     Indication: ANKYLOSING SPONDYLITIS
     Dosage: 500 MG AT 0, 2, 6 WEEK, THEN EVERY 6 WEEKS
     Route: 042
     Dates: start: 20200924, end: 20200924
  6. LYRICA [Concomitant]
     Active Substance: PREGABALIN
     Dosage: UNK
  7. INFLECTRA [Suspect]
     Active Substance: INFLIXIMAB-DYYB
     Dosage: 500 MG AT 0, 2, 6 WEEK, THEN EVERY 6 WEEKS
     Route: 042
     Dates: start: 20201105, end: 20201105

REACTIONS (8)
  - Off label use [Unknown]
  - Heart rate irregular [Unknown]
  - Heart rate decreased [Unknown]
  - Off label use [Unknown]
  - Intentional product use issue [Unknown]
  - Blood pressure fluctuation [Unknown]
  - Blood pressure increased [Unknown]
  - Off label use [Recovered/Resolved]

NARRATIVE: CASE EVENT DATE: 20200924
